FAERS Safety Report 9159368 (Version 2)
Quarter: 2013Q1

REPORT INFORMATION
  Report Type: Spontaneous
  Country: US (occurrence: None)
  Receive Date: 20130214
  Receipt Date: 20130304
  Transmission Date: 20140127
  Serious: Yes (Hospitalization)
  Sender: FDA-Public Use
  Company Number: IPC201302-000042

PATIENT
  Age: 59 Year
  Sex: Female

DRUGS (16)
  1. METFORMIN HYDROCHLORIDE [Suspect]
     Indication: DIABETES MELLITUS
  2. LEVOTHYROXINE (LEVOTHYROXINE) (LEVOTHYROXINE) [Concomitant]
  3. INSULIN DETEMIR [Concomitant]
  4. INSULIN ASPART [Concomitant]
  5. ALENDRONATE [Concomitant]
  6. ASPIRIN [Concomitant]
  7. LISINOPRIL [Concomitant]
  8. SIMVASTATIN [Concomitant]
  9. CYANOCOBALAMIN [Concomitant]
  10. CITALOPRAM [Concomitant]
  11. PROMETHAZINE [Concomitant]
  12. LORAZEPAM [Concomitant]
  13. HYDROCODONE/ACETAMINOPHEN [Concomitant]
  14. VITAMIN C [Concomitant]
  15. CALCIUM [Concomitant]
  16. VITAMIN D [Concomitant]

REACTIONS (3)
  - Pancreatitis chronic [None]
  - Condition aggravated [None]
  - Blood glucose increased [None]
